FAERS Safety Report 8200160-0 (Version None)
Quarter: 2012Q1

REPORT INFORMATION
  Report Type: 
  Country: None (occurrence: None)
  Receive Date: 20120312
  Receipt Date: 20120302
  Transmission Date: 20120608
  Serious: Yes (Hospitalization, Other)
  Sender: FDA-Public Use
  Company Number: US-BAYER-2011-086855

PATIENT
  Age: 45 Year
  Sex: Female
  Weight: 65.306 kg

DRUGS (5)
  1. YAZ [Suspect]
     Indication: PELVIC PAIN
     Dosage: UNK
     Dates: start: 20081201, end: 20110902
  2. CELEXA [Concomitant]
  3. YAZ [Suspect]
     Indication: DYSMENORRHOEA
  4. YAZ [Suspect]
     Indication: ENDOMETRIOSIS
  5. GABAPENTIN [Concomitant]

REACTIONS (3)
  - DYSPNOEA [None]
  - PULMONARY INFARCTION [None]
  - PULMONARY EMBOLISM [None]
